FAERS Safety Report 18755100 (Version 1)
Quarter: 2021Q1

REPORT INFORMATION
  Report Type: Spontaneous
  Country: US (occurrence: US)
  Receive Date: 20210117
  Receipt Date: 20210117
  Transmission Date: 20210419
  Serious: Yes (Hospitalization)
  Sender: FDA-Public Use
  Company Number: None

PATIENT
  Age: 79 Year
  Sex: Male
  Weight: 122.5 kg

DRUGS (8)
  1. PRAMIPEXOLE 0.125MG TID [Concomitant]
  2. AMLODIPINE 10MG DAILY [Concomitant]
  3. CELECOXIB 200MG DAILY [Concomitant]
  4. GABAPENTIN 300MG TID [Concomitant]
  5. BAMLANIVIMAB. [Suspect]
     Active Substance: BAMLANIVIMAB
     Indication: COVID-19
     Dosage: ?          OTHER FREQUENCY:ONCE;?
     Route: 041
     Dates: start: 20210112, end: 20210112
  6. HYDROCHLOROTHIAZIDE 25 MG DAILY [Concomitant]
  7. LOSARTAN 50MG DAILY [Concomitant]
  8. DULOXETINE 60MG DAILY [Concomitant]
     Active Substance: DULOXETINE

REACTIONS (5)
  - Muscular weakness [None]
  - Dyspnoea [None]
  - COVID-19 [None]
  - Cough [None]
  - Hypoxia [None]

NARRATIVE: CASE EVENT DATE: 20210116
